FAERS Safety Report 7541057-9 (Version None)
Quarter: 2011Q2

REPORT INFORMATION
  Report Type: 
  Country: None (occurrence: None)
  Receive Date: 20110610
  Receipt Date: 20110530
  Transmission Date: 20111010
  Serious: Yes (Death)
  Sender: FDA-Public Use
  Company Number: IN-MYLANLABS-2011S1011390

PATIENT
  Age: 66 Year
  Sex: Male

DRUGS (5)
  1. AZITHROMYCIN [Suspect]
     Indication: COUGH
     Route: 065
  2. MIDAZOLAM HCL [Concomitant]
     Indication: LOCAL ANAESTHESIA
     Route: 042
  3. PANTOPRAZOLE [Concomitant]
     Route: 065
  4. ATORVASTATIN [Interacting]
     Indication: HYPERLIPIDAEMIA
     Dosage: 20MG DAILY
     Route: 065
  5. IBUPROFEN [Concomitant]
     Route: 065

REACTIONS (3)
  - MULTI-ORGAN FAILURE [None]
  - DRUG INTERACTION [None]
  - RHABDOMYOLYSIS [None]
